FAERS Safety Report 25498398 (Version 1)
Quarter: 2025Q3

REPORT INFORMATION
  Report Type: Spontaneous
  Country: EU (occurrence: EU)
  Receive Date: 20250701
  Receipt Date: 20250701
  Transmission Date: 20251021
  Serious: Yes (Hospitalization)
  Sender: MYLAN
  Company Number: EU-MYLANLABS-2025M1054534

PATIENT
  Age: 67 Year
  Sex: Male

DRUGS (4)
  1. ATORVASTATIN [Suspect]
     Active Substance: ATORVASTATIN
     Indication: Prophylaxis
  2. ATORVASTATIN [Suspect]
     Active Substance: ATORVASTATIN
     Route: 065
  3. ATORVASTATIN [Suspect]
     Active Substance: ATORVASTATIN
     Route: 065
  4. ATORVASTATIN [Suspect]
     Active Substance: ATORVASTATIN

REACTIONS (2)
  - Hepatotoxicity [Recovering/Resolving]
  - Cholestatic liver injury [Recovering/Resolving]
